FAERS Safety Report 8521367-9 (Version None)
Quarter: 2012Q3

REPORT INFORMATION
  Report Type: 
  Country: None (occurrence: None)
  Receive Date: 20120719
  Receipt Date: 20120703
  Transmission Date: 20120928
  Serious: Yes (Other)
  Sender: FDA-Public Use
  Company Number: US-009507513-1207USA004916

PATIENT

DRUGS (3)
  1. RIBAVIRIN [Suspect]
     Indication: HEPATITIS C
     Dosage: UNK
     Dates: start: 20120424
  2. BOCEPREVIR [Suspect]
     Indication: HEPATITIS C
     Dosage: UNK
     Dates: start: 20120522
  3. PEGINTERFERON ALFA-2B [Suspect]
     Indication: HEPATITIS C
     Dosage: UNK
     Dates: start: 20120424

REACTIONS (6)
  - WEIGHT DECREASED [None]
  - APPLICATION SITE ERYTHEMA [None]
  - TOOTH FRACTURE [None]
  - ALCOHOL ABUSE [None]
  - DYSGEUSIA [None]
  - NAUSEA [None]
